FAERS Safety Report 9110722 (Version 1)
Quarter: 2013Q1

REPORT INFORMATION
  Report Type: Spontaneous
  Country: US (occurrence: US)
  Receive Date: 20130219
  Receipt Date: 20130219
  Transmission Date: 20140127
  Serious: No
  Sender: FDA-Public Use
  Company Number: US-BRISTOL-MYERS SQUIBB COMPANY-16907388

PATIENT
  Age: 52 Year
  Sex: Female

DRUGS (8)
  1. ABATACEPT SUBQ INJECTION 125MG/ML [Suspect]
     Indication: RHEUMATOID ARTHRITIS
     Route: 058
     Dates: start: 20120510
  2. AMBIEN [Concomitant]
  3. IMITREX [Concomitant]
  4. LEXAPRO [Concomitant]
  5. NEXIUM [Concomitant]
  6. PRAVASTATIN SODIUM [Concomitant]
  7. TRAMADOL [Concomitant]
  8. XANAX [Concomitant]

REACTIONS (1)
  - Medication error [Unknown]
